FAERS Safety Report 25810816 (Version 2)
Quarter: 2025Q3

REPORT INFORMATION
  Report Type: Spontaneous
  Country: US (occurrence: US)
  Receive Date: 20250917
  Receipt Date: 20250923
  Transmission Date: 20251020
  Serious: Yes (Hospitalization, Other)
  Sender: ROCHE
  Company Number: US-ROCHE-10000386787

PATIENT
  Age: 66 Year
  Sex: Female
  Weight: 31.75 kg

DRUGS (6)
  1. OCREVUS [Suspect]
     Active Substance: OCRELIZUMAB
     Indication: Primary progressive multiple sclerosis
     Route: 065
     Dates: start: 201802
  2. OCREVUS [Suspect]
     Active Substance: OCRELIZUMAB
     Route: 065
     Dates: start: 20180917
  3. CLONAZEPAM [Concomitant]
     Active Substance: CLONAZEPAM
  4. POTASSIUM [Concomitant]
     Active Substance: POTASSIUM
  5. DEMEROL [Concomitant]
     Active Substance: MEPERIDINE HYDROCHLORIDE
     Indication: Pain management
  6. LEVOTHYROXINE [Concomitant]
     Active Substance: LEVOTHYROXINE

REACTIONS (23)
  - Cardiac failure [Unknown]
  - Renal failure [Unknown]
  - Thyroid disorder [Unknown]
  - Weight decreased [Unknown]
  - Feeding disorder [Unknown]
  - Insomnia [Unknown]
  - Mental impairment [Unknown]
  - Immunodeficiency [Unknown]
  - Pain [Unknown]
  - Seizure [Unknown]
  - Coma [Recovered/Resolved]
  - Diabetes mellitus [Unknown]
  - Haemorrhage [Unknown]
  - Ulcer [Unknown]
  - Optic neuritis [Unknown]
  - Breast mass [Not Recovered/Not Resolved]
  - Sepsis [Unknown]
  - Urinary tract infection [Unknown]
  - Fall [Unknown]
  - Head injury [Recovered/Resolved]
  - Dysphonia [Not Recovered/Not Resolved]
  - Aphonia [Not Recovered/Not Resolved]
  - Drug hypersensitivity [Unknown]

NARRATIVE: CASE EVENT DATE: 20240101
